FAERS Safety Report 8974132 (Version 1)
Quarter: 2012Q4

REPORT INFORMATION
  Report Type: Spontaneous
  Country: US (occurrence: None)
  Receive Date: 20121213
  Receipt Date: 20121213
  Transmission Date: 20130627
  Serious: Yes (Hospitalization)
  Sender: FDA-Public Use
  Company Number: None

PATIENT
  Age: 67 Year
  Sex: Male

DRUGS (1)
  1. FLEXERIL [Suspect]
     Dosage: 5 MG PO TID PRN
     Route: 048
     Dates: start: 20120919, end: 20120920

REACTIONS (2)
  - Confusional state [None]
  - Mental status changes [None]
